FAERS Safety Report 9201395 (Version 1)
Quarter: 2013Q2

REPORT INFORMATION
  Report Type: Spontaneous
  Country: US (occurrence: US)
  Receive Date: 20130401
  Receipt Date: 20130401
  Transmission Date: 20140414
  Serious: No
  Sender: FDA-Public Use
  Company Number: US-009507513-1304USA000205

PATIENT
  Sex: Female

DRUGS (1)
  1. LOTRIMIN AF RINGWORM CREAM [Suspect]
     Indication: ORAL FUNGAL INFECTION
     Dosage: UNK, ONCE
     Route: 061

REACTIONS (2)
  - Lip blister [Unknown]
  - Off label use [Unknown]
